FAERS Safety Report 9839027 (Version 3)
Quarter: 2014Q1

REPORT INFORMATION
  Report Type: Spontaneous
  Country: US (occurrence: US)
  Receive Date: 20140123
  Receipt Date: 20140314
  Transmission Date: 20141002
  Serious: Yes (Other)
  Sender: FDA-Public Use
  Company Number: US-ALLERGAN-1401137US

PATIENT
  Age: 65 Year
  Sex: Female
  Weight: 70.75 kg

DRUGS (1)
  1. BOTOX [Suspect]
     Indication: HYPERTONIC BLADDER
     Dosage: 100 UNITS, SINGLE
     Dates: start: 20140115, end: 20140115

REACTIONS (2)
  - Stomatitis [Unknown]
  - Dyspnoea [Unknown]
